FAERS Safety Report 5684486-0 (Version None)
Quarter: 2008Q1

REPORT INFORMATION
  Report Type: 
  Country: None (occurrence: None)
  Receive Date: 20080328
  Receipt Date: 20080321
  Transmission Date: 20080703
  Serious: Yes (Hospitalization, Other)
  Sender: FDA-Public Use
  Company Number: PHBS2007JP16007

PATIENT
  Age: 75 Year
  Sex: Male
  Weight: 59 kg

DRUGS (21)
  1. ZOMETA [Suspect]
     Indication: MULTIPLE MYELOMA
     Dosage: 4 MG, ONCE/SINGLE
     Route: 042
     Dates: start: 20060607, end: 20060607
  2. ZOMETA [Suspect]
     Dosage: 4 MG, ONCE/SINGLE
     Route: 042
     Dates: start: 20060705, end: 20060705
  3. ZOMETA [Suspect]
     Dosage: 4 MG, ONCE/SINGLE
     Route: 042
     Dates: start: 20060728, end: 20060728
  4. ZOMETA [Suspect]
     Dosage: 4 MG, ONCE/SINGLE
     Route: 042
     Dates: start: 20060825, end: 20060825
  5. ZOMETA [Suspect]
     Dosage: 4 MG, ONCE/SINGLE
     Route: 042
     Dates: start: 20060922, end: 20060922
  6. ZOMETA [Suspect]
     Dosage: 4 MG, ONCE/SINGLE
     Route: 042
     Dates: start: 20061031, end: 20061031
  7. ZOMETA [Suspect]
     Dosage: 4 MG, ONCE/SINGLE
     Route: 042
     Dates: start: 20061121, end: 20061121
  8. ZOMETA [Suspect]
     Dosage: 4 MG, ONCE/SINGLE
     Route: 042
     Dates: start: 20061031, end: 20061031
  9. ZOMETA [Suspect]
     Dosage: 4 MG, ONCE/SINGLE
     Route: 042
     Dates: start: 20061121, end: 20061121
  10. ZOMETA [Suspect]
     Dosage: 4 MG, ONCE/SINGLE
     Route: 042
     Dates: start: 20061226, end: 20061226
  11. ZOMETA [Suspect]
     Dosage: 4 MG, ONCE/SINGLE
     Route: 042
     Dates: start: 20070130, end: 20070130
  12. ZOMETA [Suspect]
     Dosage: 4 MG, ONCE/SINGLE
     Route: 042
     Dates: start: 20070306, end: 20070306
  13. ALKERAN [Concomitant]
     Indication: MULTIPLE MYELOMA
     Dosage: 10 MG, UNK
     Route: 048
     Dates: start: 20060418
  14. PREDONINE [Concomitant]
     Indication: MULTIPLE MYELOMA
     Dosage: 60 MG, UNK
     Route: 048
     Dates: start: 20060418
  15. SELOKEN [Concomitant]
     Indication: CARDIAC FAILURE
     Dosage: 30 MG/DAY
     Route: 048
     Dates: start: 20060330
  16. DIART [Concomitant]
     Indication: CARDIAC FAILURE
     Dosage: 30 MG, UNK
     Route: 048
     Dates: start: 20070205
  17. LASIX [Concomitant]
     Indication: CARDIAC FAILURE
     Dosage: 40 MG, UNK
     Route: 048
     Dates: start: 20060330
  18. OMEPRAL [Concomitant]
     Indication: PROPHYLAXIS AGAINST GASTROINTESTINAL ULCER
     Dosage: 10 MG, UNK
     Route: 048
     Dates: start: 20060330
  19. WARFARIN SODIUM [Concomitant]
     Indication: PROPHYLAXIS
     Dosage: 1.5 MG/DAY
     Route: 048
     Dates: start: 20060719
  20. NOVOLIN [Concomitant]
     Dosage: 30 IU, UNK
     Route: 058
     Dates: start: 20060417
  21. RISEDRONATE SODIUM [Concomitant]
     Dosage: 2.5MG/DAILY
     Route: 048
     Dates: start: 20060412, end: 20060606

REACTIONS (11)
  - ANOREXIA [None]
  - BACK PAIN [None]
  - BONE DEBRIDEMENT [None]
  - CARDIAC FAILURE [None]
  - DEHYDRATION [None]
  - DYSPNOEA EXERTIONAL [None]
  - EJECTION FRACTION DECREASED [None]
  - GINGIVAL INFECTION [None]
  - GINGIVAL SWELLING [None]
  - OSTEONECROSIS [None]
  - TOOTH EXTRACTION [None]
